FAERS Safety Report 6896451-6 (Version None)
Quarter: 2010Q3

REPORT INFORMATION
  Report Type: 
  Country: None (occurrence: None)
  Receive Date: 20100802
  Receipt Date: 20100325
  Transmission Date: 20110219
  Serious: No
  Sender: FDA-Public Use
  Company Number: US-BAYER-201013639NA

PATIENT
  Age: 33 Year
  Sex: Female
  Weight: 71 kg

DRUGS (1)
  1. MIRENA [Suspect]
     Indication: CONTRACEPTION
     Dosage: FREQUENCY CONTINUOUS
     Route: 015
     Dates: start: 20070604, end: 20100304

REACTIONS (2)
  - DEVICE DISLOCATION [None]
  - PREGNANCY WITH CONTRACEPTIVE DEVICE [None]
